FAERS Safety Report 10861808 (Version 2)
Quarter: 2015Q1

REPORT INFORMATION
  Report Type: Spontaneous
  Country: IT (occurrence: IT)
  Receive Date: 20150224
  Receipt Date: 20150313
  Transmission Date: 20150721
  Serious: Yes (Hospitalization)
  Sender: FDA-Public Use
  Company Number: IT-PFIZER INC-2015065699

PATIENT
  Age: 87 Year
  Sex: Female

DRUGS (7)
  1. ESOMEPRAZOLE SODIUM. [Concomitant]
     Active Substance: ESOMEPRAZOLE SODIUM
     Dosage: 20 MG, UNK
     Route: 048
  2. GOLTOR [Concomitant]
     Dosage: 1 UNK, UNK
     Route: 048
  3. ZYVOXID [Suspect]
     Active Substance: LINEZOLID
     Indication: PERITONITIS
     Dosage: 1200 MG, DAILY
     Route: 048
     Dates: start: 20150123, end: 20150207
  4. LORAZEPAM. [Concomitant]
     Active Substance: LORAZEPAM
     Dosage: 1 MG, UNK
     Route: 048
  5. ATENOLOL. [Concomitant]
     Active Substance: ATENOLOL
     Indication: ATRIAL TACHYCARDIA
     Dosage: 50 MG, UNK
     Route: 048
  6. FUROSEMIDE. [Concomitant]
     Active Substance: FUROSEMIDE
     Dosage: 125 MG, UNK
     Route: 048
  7. CALCITRIOL. [Concomitant]
     Active Substance: CALCITRIOL
     Dosage: 0.5 MG, UNK
     Route: 048

REACTIONS (5)
  - Blood lactic acid increased [Recovering/Resolving]
  - Anaemia [Recovering/Resolving]
  - Hypotension [Recovering/Resolving]
  - Platelet count decreased [Recovering/Resolving]
  - Chronic kidney disease [Recovering/Resolving]

NARRATIVE: CASE EVENT DATE: 20150206
